FAERS Safety Report 4552312-9 (Version None)
Quarter: 2005Q1

REPORT INFORMATION
  Report Type: 
  Country: None (occurrence: None)
  Receive Date: 20050114
  Receipt Date: 20040112
  Transmission Date: 20050727
  Serious: Yes (Hospitalization)
  Sender: FDA-Public Use
  Company Number: US-GLAXOSMITHKLINE-A0492600A

PATIENT
  Sex: Female

DRUGS (17)
  1. IMITREX [Suspect]
     Indication: MIGRAINE
     Route: 065
     Dates: start: 20020101
  2. IMITREX [Suspect]
     Dosage: 1INJ AS REQUIRED
     Route: 058
     Dates: start: 20040111, end: 20040111
  3. IMITREX [Suspect]
     Route: 048
     Dates: start: 20040201
  4. TOPAMAX [Concomitant]
  5. TOPAMAX [Concomitant]
  6. DARVOCET [Concomitant]
  7. PROMETRIUM [Concomitant]
  8. VALIUM [Concomitant]
  9. WELLBUTRIN XL [Concomitant]
  10. VIOXX [Concomitant]
  11. MICRO-K [Concomitant]
  12. NEXIUM [Concomitant]
  13. ADVAIR DISKUS 100/50 [Concomitant]
  14. NASONEX [Concomitant]
  15. ALLERGY SHOT [Concomitant]
  16. NEBULIZER [Concomitant]
     Route: 055
  17. PREMARIN [Concomitant]

REACTIONS (5)
  - DRUG INEFFECTIVE [None]
  - INJECTION SITE HAEMORRHAGE [None]
  - INJECTION SITE IRRITATION [None]
  - LOSS OF CONSCIOUSNESS [None]
  - PHARMACEUTICAL PRODUCT COMPLAINT [None]
